FAERS Safety Report 5564755-5 (Version None)
Quarter: 2007Q4

REPORT INFORMATION
  Report Type: 
  Country: None (occurrence: None)
  Receive Date: 20071218
  Receipt Date: 20071207
  Transmission Date: 20080405
  Serious: Yes (Hospitalization)
  Sender: FDA-Public Use
  Company Number: HU-ROCHE-535962

PATIENT
  Age: 66 Year
  Sex: Female
  Weight: 68.3 kg

DRUGS (16)
  1. RIBAVIRIN [Suspect]
     Dosage: DOSE BLINDED.
     Route: 048
     Dates: start: 20070830
  2. PEG-INTERFERON ALFA 2A (RO 25-8310) [Suspect]
     Route: 058
     Dates: start: 20070830
  3. ZOLPIDEM TARTRATE [Concomitant]
     Dates: start: 20050215
  4. HYDROCHLOROTHIAZIDE [Concomitant]
     Dates: start: 20040726
  5. AMILORID [Concomitant]
     Dates: start: 20040726
  6. NIFEDIPINE [Concomitant]
     Dates: start: 20040726, end: 20071025
  7. METOPROLOL [Concomitant]
     Dates: start: 20040726, end: 20071206
  8. PIRACETAM [Concomitant]
     Dates: start: 20030815
  9. ACETYLSALICYLIC ACID SRT [Concomitant]
     Dates: start: 20000630
  10. ISOSORBIDE MONONITRATE [Concomitant]
     Dates: start: 20040726
  11. FUROSEMIDE [Concomitant]
     Dates: start: 20040726, end: 20071206
  12. CLONAZEPAM [Concomitant]
     Dates: start: 19930630
  13. RIBAVIRIN [Suspect]
     Route: 048
  14. PRAVASTATIN [Concomitant]
     Dates: start: 20070727
  15. CARBAMAZEPINE [Concomitant]
     Dates: start: 19930630
  16. SERTRALINE [Concomitant]
     Dates: start: 20050221

REACTIONS (1)
  - HYPOTENSION [None]
